FAERS Safety Report 23183371 (Version 5)
Quarter: 2024Q1

REPORT INFORMATION
  Report Type: Spontaneous
  Country: CA (occurrence: CA)
  Receive Date: 20231114
  Receipt Date: 20240101
  Transmission Date: 20240409
  Serious: Yes (Hospitalization, Other)
  Sender: FDA-Public Use
  Company Number: CA-PFIZER INC-202300277659

PATIENT
  Age: 19 Year
  Sex: Male
  Weight: 83.3 kg

DRUGS (14)
  1. RUXIENCE [Suspect]
     Active Substance: RITUXIMAB-PVVR
     Indication: Glomerulonephritis minimal lesion
     Dosage: 855 MG, WEEKLY FIRST TREATMENT ON RECORD (ONCE WEEKLY FOR 4 DOSES)
     Route: 042
     Dates: start: 20231026
  2. RUXIENCE [Suspect]
     Active Substance: RITUXIMAB-PVVR
     Dosage: 765 MG, WEEKLY DOSES FOR 4 WEEKS
     Route: 042
     Dates: start: 20231027
  3. RUXIENCE [Suspect]
     Active Substance: RITUXIMAB-PVVR
     Dosage: 855 MG, WEEKLY FIRST TREATMENT ON RECORD (ONCE WEEKLY FOR 4 DOSES)
     Route: 042
     Dates: start: 20231103
  4. RUXIENCE [Suspect]
     Active Substance: RITUXIMAB-PVVR
     Dosage: 855 MG, AFTER 1 WEEK AND 6 DAYS (WEEKLY FOR 4 WEEKS)
     Route: 042
     Dates: start: 20231116
  5. RUXIENCE [Suspect]
     Active Substance: RITUXIMAB-PVVR
     Dosage: 855 MG, AFTER 1 WEEK AND 6 DAYS (WEEKLY FOR 4 WEEKS)
     Route: 042
     Dates: start: 20231116
  6. ACETAMINOPHEN [Concomitant]
     Active Substance: ACETAMINOPHEN
     Indication: Premedication
     Dosage: UNK
     Dates: start: 20231026, end: 20231026
  7. DIPHENHYDRAMINE [Concomitant]
     Active Substance: DIPHENHYDRAMINE
     Indication: Premedication
     Dosage: UNK
     Dates: start: 20231026, end: 20231026
  8. GRAVOL [Concomitant]
     Active Substance: DIMENHYDRINATE
     Dosage: UNK, AS NEEDED
  9. RAMIPRIL [Concomitant]
     Active Substance: RAMIPRIL
     Dosage: 2.5 MG, UNK
  10. VITAMIN D NOS [Concomitant]
     Active Substance: VITAMIN D NOS
     Dosage: UNK, DAILY
  11. CALCIUM [Concomitant]
     Active Substance: CALCIUM
     Dosage: UNK, DAILY
  12. MYCOPHENOLATE MOFETIL [Concomitant]
     Active Substance: MYCOPHENOLATE MOFETIL
     Dosage: 180 MG, 2X/DAYFOR 2WEEKS
  13. MYCOPHENOLATE MOFETIL [Concomitant]
     Active Substance: MYCOPHENOLATE MOFETIL
     Dosage: 360 MG, 2X/DAY
     Dates: start: 20231004
  14. TYLENOL [Suspect]
     Active Substance: ACETAMINOPHEN
     Dosage: UNK, AS NEEDED

REACTIONS (15)
  - Fluid retention [Not Recovered/Not Resolved]
  - Ascites [Unknown]
  - Pleural effusion [Unknown]
  - Dyspnoea [Recovering/Resolving]
  - Oedema [Recovering/Resolving]
  - Polyuria [Unknown]
  - Chest pain [Recovered/Resolved]
  - Chest discomfort [Recovered/Resolved]
  - Dyspnoea [Recovered/Resolved]
  - Hypoaesthesia oral [Recovered/Resolved]
  - Nausea [Recovered/Resolved]
  - Vomiting [Recovered/Resolved]
  - Nephrotic syndrome [Not Recovered/Not Resolved]
  - Off label use [Unknown]
  - Proteinuria [Not Recovered/Not Resolved]

NARRATIVE: CASE EVENT DATE: 20230101
